FAERS Safety Report 22005592 (Version 1)
Quarter: 2023Q1

REPORT INFORMATION
  Report Type: Spontaneous
  Country: US (occurrence: None)
  Receive Date: 20230216
  Receipt Date: 20230216
  Transmission Date: 20230417
  Serious: No
  Sender: FDA-Public Use
  Company Number: None

PATIENT
  Age: 46 Year
  Sex: Female
  Weight: 102.15 kg

DRUGS (4)
  1. REYVOW [Suspect]
     Active Substance: LASMIDITAN
     Indication: Migraine
     Route: 048
     Dates: start: 20230215, end: 20230215
  2. TOPAMAX [Concomitant]
     Active Substance: TOPIRAMATE
  3. Nasacort sid [Concomitant]
  4. LORATADINE [Concomitant]
     Active Substance: LORATADINE

REACTIONS (12)
  - Fatigue [None]
  - Myalgia [None]
  - Muscular weakness [None]
  - Movement disorder [None]
  - Headache [None]
  - Muscle twitching [None]
  - Muscle spasms [None]
  - Ventricular extrasystoles [None]
  - Insomnia [None]
  - Gait disturbance [None]
  - Discomfort [None]
  - Fatigue [None]

NARRATIVE: CASE EVENT DATE: 20230215
